FAERS Safety Report 8551067-0 (Version None)
Quarter: 2012Q3

REPORT INFORMATION
  Report Type: 
  Country: None (occurrence: None)
  Receive Date: 20120730
  Receipt Date: 20110829
  Transmission Date: 20120928
  Serious: No
  Sender: FDA-Public Use
  Company Number: US-ALLERGAN-1111351US

PATIENT
  Sex: Female

DRUGS (2)
  1. LATISSE [Suspect]
     Dosage: 1 GTT, QHS
     Route: 061
  2. LATISSE [Suspect]
     Indication: MADAROSIS
     Dosage: 2 GTT, QHS
     Route: 061

REACTIONS (2)
  - INCORRECT DOSE ADMINISTERED [None]
  - SKIN DISCOLOURATION [None]
